FAERS Safety Report 17293435 (Version 1)
Quarter: 2020Q1

REPORT INFORMATION
  Report Type: Spontaneous
  Country: JP (occurrence: JP)
  Receive Date: 20200121
  Receipt Date: 20200121
  Transmission Date: 20200409
  Serious: Yes (Other)
  Sender: FDA-Public Use
  Company Number: JP-STRIDES ARCOLAB LIMITED-2020SP000560

PATIENT
  Age: 8 Day
  Sex: Male

DRUGS (1)
  1. VANCOMYCIN [Suspect]
     Active Substance: VANCOMYCIN
     Indication: STAPHYLOCOCCAL SCALDED SKIN SYNDROME
     Dosage: UNK
     Route: 065

REACTIONS (8)
  - Ototoxicity [Unknown]
  - Neonatal deafness [Recovered/Resolved]
  - Renal impairment [Recovered/Resolved]
  - Product preparation error [Unknown]
  - Accidental overdose [Unknown]
  - Acute kidney injury [Recovered/Resolved]
  - Nephropathy toxic [Unknown]
  - Product administration error [Unknown]
